FAERS Safety Report 22616460 (Version 1)
Quarter: 2023Q2

REPORT INFORMATION
  Report Type: Spontaneous
  Country: FR (occurrence: None)
  Receive Date: 20230619
  Receipt Date: 20230619
  Transmission Date: 20230722
  Serious: Yes (Other)
  Sender: FDA-Public Use
  Company Number: 2023A135802

PATIENT
  Age: 61 Year
  Sex: Male
  Weight: 98 kg

DRUGS (10)
  1. ESOMEPRAZOLE [Interacting]
     Active Substance: ESOMEPRAZOLE
     Indication: Prophylaxis
     Dosage: 20 MILLIGRAM, 1/DAY
     Route: 048
     Dates: start: 20220201
  2. HYDROCORTISONE [Interacting]
     Active Substance: HYDROCORTISONE
     Indication: Product used for unknown indication
     Dosage: 10 MILLIGRAM, 1/DAY
     Route: 048
     Dates: start: 20230501
  3. BISOPROLOL FUMARATE [Interacting]
     Active Substance: BISOPROLOL FUMARATE
     Indication: Product used for unknown indication
     Dosage: 2.5 MILLIGRAM, 1/DAY
     Route: 048
     Dates: start: 20211123
  4. PREDNISONE [Interacting]
     Active Substance: PREDNISONE
     Indication: Product used for unknown indication
     Dosage: 3 MILLIGRAM, 1/DAY
     Route: 048
  5. AZATHIOPRINE [Interacting]
     Active Substance: AZATHIOPRINE
     Indication: Product used for unknown indication
     Dosage: 150 MILLIGRAM, 1/DAY
     Route: 048
     Dates: start: 20220601
  6. AMIODARONE [Interacting]
     Active Substance: AMIODARONE
     Indication: Atrial fibrillation
     Dosage: 1200 MILLIGRAM, 1/WEEK
     Route: 048
     Dates: start: 20220201
  7. PERINDOPRIL [Interacting]
     Active Substance: PERINDOPRIL
     Indication: Hypertension
     Dosage: 5 MILLIGRAM, 1/DAY
     Route: 048
     Dates: start: 202205, end: 20230526
  8. DOXYCYCLINE [Interacting]
     Active Substance: DOXYCYCLINE
     Indication: Infection prophylaxis
     Dosage: 200 MILLIGRAM, 1/DAY
     Route: 048
     Dates: start: 20220907
  9. AMLODIPINE [Interacting]
     Active Substance: AMLODIPINE BESYLATE
     Indication: Hypertension
     Dosage: 5 MILLIGRAM, 1/DAY
     Route: 048
     Dates: start: 202205
  10. ELIQUIS [Interacting]
     Active Substance: APIXABAN
     Indication: Product used for unknown indication
     Dosage: 10 MILLIGRAM, 1/DAY
     Route: 048
     Dates: start: 20220201

REACTIONS (2)
  - Photosensitivity reaction [Recovered/Resolved]
  - Drug interaction [Recovered/Resolved]

NARRATIVE: CASE EVENT DATE: 20230501
